FAERS Safety Report 24328331 (Version 1)
Quarter: 2024Q3

REPORT INFORMATION
  Report Type: Spontaneous
  Country: US (occurrence: US)
  Receive Date: 20240917
  Receipt Date: 20240917
  Transmission Date: 20241017
  Serious: Yes (Life-Threatening)
  Sender: NOVARTIS
  Company Number: US-002147023-NVSC2024US184811

PATIENT
  Sex: Female

DRUGS (1)
  1. ENTRESTO [Suspect]
     Active Substance: SACUBITRIL\VALSARTAN
     Indication: Heart failure with reduced ejection fraction
     Dosage: UNK
     Route: 065

REACTIONS (2)
  - Hyperkalaemia [Unknown]
  - Heart failure with reduced ejection fraction [Unknown]
